FAERS Safety Report 10020930 (Version 1)
Quarter: 2014Q1

REPORT INFORMATION
  Report Type: Spontaneous
  Country: NO (occurrence: NO)
  Receive Date: 20140319
  Receipt Date: 20140319
  Transmission Date: 20141002
  Serious: Yes (Other)
  Sender: FDA-Public Use
  Company Number: NO-SA-2014SA032092

PATIENT
  Sex: Female

DRUGS (1)
  1. STILNOCT [Suspect]
     Indication: SLEEP DISORDER
     Dosage: DOSE- 1-6 TABLETS
     Route: 048

REACTIONS (5)
  - Choking sensation [Unknown]
  - Nervous system disorder [Unknown]
  - Increased appetite [Unknown]
  - Drug dependence [Unknown]
  - Overdose [Unknown]
